FAERS Safety Report 7799960-0 (Version None)
Quarter: 2011Q4

REPORT INFORMATION
  Report Type: 
  Country: None (occurrence: None)
  Receive Date: 20111006
  Receipt Date: 20110930
  Transmission Date: 20120403
  Serious: Yes (Death)
  Sender: FDA-Public Use
  Company Number: US-ALEXION PHARMACEUTICALS INC.-A201101491

PATIENT

DRUGS (3)
  1. SOLIRIS [Suspect]
     Indication: PROPHYLAXIS AGAINST TRANSPLANT REJECTION
     Dosage: 1200 MG, SINGLE
  2. SOLIRIS [Suspect]
     Dosage: 600 MG, QWX3
  3. SOLIRIS [Suspect]
     Dosage: 1200 MG, WEEKS 4 AND 5, THEN BI-WEEKLY

REACTIONS (1)
  - BURKITT'S LYMPHOMA [None]
